FAERS Safety Report 17817324 (Version 3)
Quarter: 2020Q4

REPORT INFORMATION
  Report Type: Report from Study
  Country: None (occurrence: US)
  Receive Date: 20200522
  Receipt Date: 20201211
  Transmission Date: 20210113
  Serious: Yes (Other)
  Sender: FDA-Public Use
  Company Number: US-ABBVIE-19K-163-3150323-00

PATIENT
  Age: 58 Year
  Sex: Male

DRUGS (9)
  1. IMBRUVICA [Suspect]
     Active Substance: IBRUTINIB
     Dosage: 420 MG, QD
     Route: 048
     Dates: start: 20180503
  2. IMBRUVICA [Suspect]
     Active Substance: IBRUTINIB
     Dosage: TAKING 2 DAYS ON, THEN ONE DAY OFF.
     Route: 048
     Dates: start: 20180503
  3. IMBRUVICA [Suspect]
     Active Substance: IBRUTINIB
     Dosage: 420 MG, QD
     Route: 048
     Dates: start: 20150716, end: 20180502
  4. IMBRUVICA [Suspect]
     Active Substance: IBRUTINIB
     Route: 048
     Dates: start: 20180503
  5. IMBRUVICA [Suspect]
     Active Substance: IBRUTINIB
     Indication: CHRONIC LYMPHOCYTIC LEUKAEMIA STAGE 3
     Dosage: 420 MG, QD
     Route: 048
     Dates: start: 20150707, end: 202003
  6. IMBRUVICA [Suspect]
     Active Substance: IBRUTINIB
     Indication: CHRONIC LYMPHOCYTIC LEUKAEMIA
     Route: 048
     Dates: start: 20190527
  7. IMBRUVICA [Suspect]
     Active Substance: IBRUTINIB
     Indication: CHRONIC LYMPHOCYTIC LEUKAEMIA
     Dosage: 140 MG, QD
     Route: 048
     Dates: start: 20150716
  8. IMBRUVICA [Suspect]
     Active Substance: IBRUTINIB
     Indication: CHRONIC LYMPHOCYTIC LEUKAEMIA STAGE 3
     Dosage: 420 MG, QD
     Route: 048
     Dates: start: 201507
  9. IMBRUVICA [Suspect]
     Active Substance: IBRUTINIB
     Route: 048

REACTIONS (29)
  - Weight decreased [Unknown]
  - Upper respiratory tract infection [Unknown]
  - Incorrect dose administered [Unknown]
  - Bone pain [Unknown]
  - Somnolence [Unknown]
  - Prostatomegaly [Unknown]
  - Neutrophil count increased [Unknown]
  - Cholelithiasis [Unknown]
  - Sinus congestion [Not Recovered/Not Resolved]
  - Fatigue [Not Recovered/Not Resolved]
  - Myalgia [Recovering/Resolving]
  - Pain [Unknown]
  - Joint swelling [Unknown]
  - Localised infection [Recovering/Resolving]
  - Onychoclasis [Unknown]
  - Diarrhoea [Recovered/Resolved]
  - Disease progression [Unknown]
  - Peripheral swelling [Not Recovered/Not Resolved]
  - White blood cell count increased [Recovering/Resolving]
  - Joint lock [Unknown]
  - Lymphocytosis [Unknown]
  - Staphylococcal infection [Unknown]
  - Paronychia [Unknown]
  - Inflammation [Unknown]
  - Erythema [Unknown]
  - Arthropathy [Unknown]
  - Arteriosclerosis coronary artery [Unknown]
  - Gout [Unknown]
  - Enterobacter infection [Unknown]

NARRATIVE: CASE EVENT DATE: 20150716
